FAERS Safety Report 24049145 (Version 1)
Quarter: 2024Q3

REPORT INFORMATION
  Report Type: Spontaneous
  Country: BE (occurrence: BE)
  Receive Date: 20240704
  Receipt Date: 20240704
  Transmission Date: 20241017
  Serious: Yes (Other)
  Sender: JOHNSON AND JOHNSON
  Company Number: BE-JNJFOC-20240678528

PATIENT
  Sex: Female

DRUGS (1)
  1. DARZALEX [Suspect]
     Active Substance: DARATUMUMAB
     Indication: Plasma cell myeloma
     Route: 065
     Dates: end: 202312

REACTIONS (3)
  - Neuropathy peripheral [Unknown]
  - Peroneal nerve palsy [Unknown]
  - Diarrhoea [Unknown]
